FAERS Safety Report 6802303-X (Version None)
Quarter: 2010Q2

REPORT INFORMATION
  Report Type: 
  Country: None (occurrence: None)
  Receive Date: 20100628
  Receipt Date: 20100618
  Transmission Date: 20101027
  Serious: Yes (Hospitalization)
  Sender: FDA-Public Use
  Company Number: US-BIOGENIDEC-2010BI013775

PATIENT
  Age: 72 Year
  Sex: Female

DRUGS (2)
  1. TYSABRI [Suspect]
     Indication: MULTIPLE SCLEROSIS
     Route: 042
     Dates: start: 20061006, end: 20070103
  2. TYSABRI [Suspect]
     Route: 042
     Dates: start: 20070507, end: 20100101

REACTIONS (2)
  - PNEUMONIA [None]
  - SMALL INTESTINAL OBSTRUCTION [None]
